FAERS Safety Report 4481073-7 (Version None)
Quarter: 2004Q4

REPORT INFORMATION
  Report Type: 
  Country: None (occurrence: None)
  Receive Date: 20041020
  Receipt Date: 20041020
  Transmission Date: 20050328
  Serious: Yes (Life-Threatening, Hospitalization)
  Sender: FDA-Public Use
  Company Number: None

PATIENT
  Age: 43 Year
  Sex: Male
  Weight: 88.9 kg

DRUGS (3)
  1. BACTRIM [Suspect]
     Indication: BRONCHITIS
     Dosage: ONE TAB TID-PO
     Route: 048
     Dates: start: 19960508, end: 19960520
  2. BACTRIM [Suspect]
     Indication: SINUSITIS
     Dosage: ONE TAB TID-PO
     Route: 048
     Dates: start: 19960508, end: 19960520
  3. CLARITIN [Concomitant]

REACTIONS (1)
  - TOXIC EPIDERMAL NECROLYSIS [None]
